FAERS Safety Report 6381960-9 (Version None)
Quarter: 2009Q3

REPORT INFORMATION
  Report Type: 
  Country: None (occurrence: None)
  Receive Date: 20090930
  Receipt Date: 20090827
  Transmission Date: 20100115
  Serious: No
  Sender: FDA-Public Use
  Company Number: US-BAYER-200913862BCC

PATIENT
  Age: 76 Year
  Sex: Female
  Weight: 82 kg

DRUGS (11)
  1. ALEVE [Suspect]
     Indication: ARTHRALGIA
     Dosage: TOTAL DAILY DOSE: 440 MG  UNIT DOSE: 220 MG
     Route: 048
     Dates: start: 20090501
  2. ALEVE [Suspect]
     Indication: ARTHRALGIA
     Dosage: CONSUMER TOOK 1 OR 2 ALEVE SMOOTH GELS IN THE EVENING
     Route: 048
     Dates: start: 20090501
  3. CLARITIN [Concomitant]
     Route: 065
  4. EYE DROPS [Concomitant]
     Route: 047
  5. POTASSIUM CHLORIDE [Concomitant]
     Route: 065
  6. MAGNESIUM [Concomitant]
     Route: 065
  7. MULTIVITAMIN [Concomitant]
     Route: 065
  8. GLUCOSAMINE [Concomitant]
     Route: 065
  9. ONE-A-DAY CHOLESTEROL PLUS [Concomitant]
     Route: 065
  10. VITAMIN B COMPLEX CAP [Concomitant]
     Route: 065
  11. VITAMIN D SUPPLEMENT [Concomitant]
     Route: 065

REACTIONS (5)
  - ARTHRALGIA [None]
  - ERYTHEMA [None]
  - JOINT SWELLING [None]
  - OEDEMA PERIPHERAL [None]
  - SWELLING FACE [None]
